FAERS Safety Report 23328824 (Version 2)
Quarter: 2024Q1

REPORT INFORMATION
  Report Type: Spontaneous
  Country: CA (occurrence: CA)
  Receive Date: 20231222
  Receipt Date: 20240116
  Transmission Date: 20240410
  Serious: Yes (Hospitalization, Other)
  Sender: FDA-Public Use
  Company Number: CA-NOVOPROD-1152765

PATIENT
  Age: 53 Year
  Sex: Female

DRUGS (1)
  1. SAXENDA [Suspect]
     Active Substance: LIRAGLUTIDE
     Indication: Weight control
     Dosage: 0.6 MG, QD
     Route: 058
     Dates: start: 20231127, end: 20231210

REACTIONS (5)
  - Cholelithiasis [Not Recovered/Not Resolved]
  - Pancreatitis [Recovering/Resolving]
  - Tremor [Unknown]
  - Diarrhoea [Recovered/Resolved]
  - Eructation [Recovered/Resolved]

NARRATIVE: CASE EVENT DATE: 20231209
